FAERS Safety Report 17297169 (Version 1)
Quarter: 2020Q1

REPORT INFORMATION
  Report Type: Other
  Country: ES (occurrence: ES)
  Receive Date: 20200122
  Receipt Date: 20200122
  Transmission Date: 20200409
  Serious: Yes (Hospitalization, Other)
  Sender: FDA-Public Use
  Company Number: ES-ASTELLAS-2020US001889

PATIENT
  Age: 14 Year
  Sex: Female

DRUGS (3)
  1. SIROLIMUS. [Interacting]
     Active Substance: SIROLIMUS
     Indication: MULTIVISCERAL TRANSPLANTATION
     Route: 048
     Dates: start: 20180202, end: 20190809
  2. SIROLIMUS. [Interacting]
     Active Substance: SIROLIMUS
     Dosage: UNK, UNKNOWN FREQ. (REDUCED DOSE)
     Route: 065
  3. MODIGRAF [Suspect]
     Active Substance: TACROLIMUS
     Indication: MULTIVISCERAL TRANSPLANTATION
     Dosage: 2 MG, ONCE DAILY (50 SACHETS FOR ORAL SUSPENSION)
     Route: 048
     Dates: start: 20120202

REACTIONS (4)
  - Drug interaction [Unknown]
  - Hypovolaemic shock [Recovered/Resolved]
  - Viral diarrhoea [Recovered/Resolved]
  - Product use in unapproved indication [Unknown]

NARRATIVE: CASE EVENT DATE: 20120202
